FAERS Safety Report 9735636 (Version 1)
Quarter: 2013Q4

REPORT INFORMATION
  Report Type: Spontaneous
  Country: US (occurrence: None)
  Receive Date: 20131205
  Receipt Date: 20131205
  Transmission Date: 20140711
  Serious: Yes (Hospitalization)
  Sender: FDA-Public Use
  Company Number: None

PATIENT
  Age: 12 Year
  Sex: Male
  Weight: 50.9 kg

DRUGS (6)
  1. METHOTREXATE [Suspect]
     Dates: end: 20131122
  2. PEG-L-ASPARAGINASE (PEGASPARGASE, ONCOSPAR) [Suspect]
     Dates: end: 20131115
  3. VINCRISTINE SULFATE [Suspect]
     Dates: end: 20131122
  4. CYCLOPHOSPHAMIDE [Suspect]
     Dates: end: 20131129
  5. CYTARABINE [Suspect]
     Dates: end: 20131129
  6. MERCAPTOPURINE [Suspect]
     Dates: end: 20131129

REACTIONS (3)
  - Cerebrovascular accident [None]
  - Facial paresis [None]
  - Hemiparesis [None]
